FAERS Safety Report 21666908 (Version 4)
Quarter: 2023Q4

REPORT INFORMATION
  Report Type: Spontaneous
  Country: JP (occurrence: JP)
  Receive Date: 20221201
  Receipt Date: 20231111
  Transmission Date: 20240110
  Serious: Yes (Death)
  Sender: FDA-Public Use
  Company Number: JP-BAYER-2022A165208

PATIENT
  Sex: Male

DRUGS (8)
  1. EYLEA [Suspect]
     Active Substance: AFLIBERCEPT
     Indication: Diabetic retinal oedema
     Dosage: 2 MG, ONCE, SOLUTION FOR INJECTION IN PRE-FILLED SYRINGE; 40MG/ML
     Route: 031
     Dates: start: 20220502, end: 20220502
  2. EYLEA [Suspect]
     Active Substance: AFLIBERCEPT
     Dosage: 2 MG, ONCE, SOLUTION FOR INJECTION IN PRE-FILLED SYRINGE; 40MG/ML
     Route: 031
     Dates: start: 20220627, end: 20220627
  3. EYLEA [Suspect]
     Active Substance: AFLIBERCEPT
     Dosage: 2 MG, ONCE, SOLUTION FOR INJECTION IN PRE-FILLED SYRINGE; 40MG/ML
     Route: 031
     Dates: start: 20221014, end: 20221014
  4. PIOGLITAZONE [Concomitant]
     Active Substance: PIOGLITAZONE
     Indication: Type 2 diabetes mellitus
     Dosage: DAILY DOSE 30MG
     Route: 048
     Dates: start: 20211122
  5. JANUVIA [Concomitant]
     Active Substance: SITAGLIPTIN PHOSPHATE
     Indication: Type 2 diabetes mellitus
     Dosage: DAILY DOSE 100MG
     Route: 048
     Dates: start: 20211108
  6. METFORMIN HYDROCHLORIDE [Concomitant]
     Active Substance: METFORMIN HYDROCHLORIDE
     Indication: Type 2 diabetes mellitus
     Dosage: DAILY DOSE 1500MG
     Route: 048
     Dates: start: 20211111
  7. CLOPIDOGREL [Concomitant]
     Active Substance: CLOPIDOGREL BISULFATE
     Indication: Cerebral infarction
     Dosage: DAILY DOSE 50MG
     Route: 048
     Dates: start: 20211120
  8. LATANOPROST\TIMOLOL MALEATE [Concomitant]
     Active Substance: LATANOPROST\TIMOLOL MALEATE
     Indication: Product used for unknown indication
     Dosage: 1 DF, RIGHT EYE
     Route: 047
     Dates: start: 20220615

REACTIONS (2)
  - Blood pressure increased [Fatal]
  - Oedema [Unknown]

NARRATIVE: CASE EVENT DATE: 20220922
